FAERS Safety Report 19621033 (Version 1)
Quarter: 2021Q3

REPORT INFORMATION
  Report Type: Spontaneous
  Country: GR (occurrence: GR)
  Receive Date: 20210728
  Receipt Date: 20210728
  Transmission Date: 20211014
  Serious: Yes (Hospitalization, Other)
  Sender: FDA-Public Use
  Company Number: GR-GLAXOSMITHKLINE-GR2021EME153547

PATIENT
  Sex: Male

DRUGS (3)
  1. BLENREP [Suspect]
     Active Substance: BELANTAMAB MAFODOTIN-BLMF
     Dosage: 2.5 MG UNK
     Dates: start: 202106
  2. BLENREP [Suspect]
     Active Substance: BELANTAMAB MAFODOTIN-BLMF
     Indication: PRODUCT USED FOR UNKNOWN INDICATION
     Dosage: 0.9 MG
  3. BLENREP [Suspect]
     Active Substance: BELANTAMAB MAFODOTIN-BLMF
     Dosage: 2.5 MG UNK
     Dates: start: 20210713

REACTIONS (13)
  - Aggression [Recovered/Resolved]
  - Pica [Unknown]
  - Fatigue [Unknown]
  - Oligodipsia [Recovered/Resolved]
  - Neuropsychiatric symptoms [Recovered/Resolved]
  - Irritability [Recovered/Resolved]
  - Haemoglobin abnormal [Recovered/Resolved]
  - Encephalopathy [Recovered/Resolved]
  - Decreased appetite [Recovered/Resolved]
  - Crying [Unknown]
  - Depressive symptom [Recovered/Resolved]
  - Abnormal behaviour [Recovered/Resolved]
  - Depression [Unknown]
